FAERS Safety Report 5122429-9 (Version None)
Quarter: 2006Q4

REPORT INFORMATION
  Report Type: 
  Country: None (occurrence: None)
  Receive Date: 20061004
  Receipt Date: 20060920
  Transmission Date: 20070319
  Serious: Yes (Hospitalization)
  Sender: FDA-Public Use
  Company Number: 2006BI012155

PATIENT
  Age: 48 Year
  Sex: Female
  Weight: 108.8633 kg

DRUGS (2)
  1. AVONEX [Suspect]
     Indication: MULTIPLE SCLEROSIS
     Dosage: 30 UG; QW; IM
     Route: 030
     Dates: start: 20010101, end: 20030101
  2. AVONEX [Suspect]
     Indication: MULTIPLE SCLEROSIS
     Dosage: 30 UG; QW; IM
     Route: 030
     Dates: start: 20030101

REACTIONS (7)
  - ABDOMINAL PAIN [None]
  - BLOOD CHOLESTEROL INCREASED [None]
  - CELLULITIS [None]
  - CLUMSINESS [None]
  - CONTUSION [None]
  - FURUNCLE [None]
  - MEMORY IMPAIRMENT [None]
